FAERS Safety Report 7233372-3 (Version None)
Quarter: 2011Q1

REPORT INFORMATION
  Report Type: 
  Country: None (occurrence: None)
  Receive Date: 20110113
  Receipt Date: 20110113
  Transmission Date: 20110831
  Serious: Yes (Life-Threatening, Hospitalization, Disabling)
  Sender: FDA-Public Use
  Company Number: None

PATIENT
  Sex: Female
  Weight: 79.8331 kg

DRUGS (1)
  1. OMEPRAZOLE [Suspect]
     Dosage: 20 MG 1 A DAY ORAL
     Route: 048
     Dates: start: 20081201, end: 20100601

REACTIONS (1)
  - RENAL FAILURE [None]
